FAERS Safety Report 17892843 (Version 2)
Quarter: 2020Q3

REPORT INFORMATION
  Report Type: Report from Study
  Country: DE (occurrence: DE)
  Receive Date: 20200613
  Receipt Date: 20200717
  Transmission Date: 20201103
  Serious: Yes (Death, Hospitalization, Other)
  Sender: FDA-Public Use
  Company Number: NVSC2020DE164978

PATIENT
  Sex: Male

DRUGS (3)
  1. RIXATHON [Suspect]
     Active Substance: RITUXIMAB
     Dosage: 1000 MG, UNKNOWN
     Route: 042
     Dates: start: 20200317
  2. RIXATHON [Suspect]
     Active Substance: RITUXIMAB
     Indication: RHEUMATOID ARTHRITIS
     Dosage: 1000 MG, UNKNOWN
     Route: 042
     Dates: start: 20200303
  3. METHOTREXATE. [Suspect]
     Active Substance: METHOTREXATE
     Indication: PRODUCT USED FOR UNKNOWN INDICATION
     Dosage: 15 MG, QW
     Route: 065
     Dates: end: 202003

REACTIONS (8)
  - Atrial fibrillation [Fatal]
  - Acute respiratory distress syndrome [Fatal]
  - Pyrexia [Fatal]
  - Sepsis [Fatal]
  - COVID-19 [Fatal]
  - Infection [Fatal]
  - Septic shock [Fatal]
  - Multiple organ dysfunction syndrome [Fatal]

NARRATIVE: CASE EVENT DATE: 202004
